FAERS Safety Report 7949971-7 (Version None)
Quarter: 2011Q4

REPORT INFORMATION
  Report Type: 
  Country: None (occurrence: None)
  Receive Date: 20111130
  Receipt Date: 20111121
  Transmission Date: 20120403
  Serious: Yes (Hospitalization)
  Sender: FDA-Public Use
  Company Number: US-BRISTOL-MYERS SQUIBB COMPANY-16240616

PATIENT
  Age: 71 Year
  Sex: Female

DRUGS (2)
  1. VALPROIC ACID [Interacting]
     Indication: CONVULSION
     Dosage: 500 MG TWICE DILY TOTAL 108 MICROG/ML
     Route: 042
  2. WARFARIN SODIUM [Suspect]
     Indication: DEEP VEIN THROMBOSIS
     Dosage: 2.5MG MONDAY-FRIDAY AND 5MG ON SATURDAY AND SUNDAY
     Route: 048

REACTIONS (2)
  - INTERNATIONAL NORMALISED RATIO INCREASED [None]
  - DRUG INTERACTION [None]
